FAERS Safety Report 9375599 (Version 1)
Quarter: 2013Q2

REPORT INFORMATION
  Report Type: Spontaneous
  Country: BR (occurrence: BR)
  Receive Date: 20130628
  Receipt Date: 20130628
  Transmission Date: 20140414
  Serious: Yes (Other)
  Sender: FDA-Public Use
  Company Number: PHHY2013BR066167

PATIENT
  Sex: 0

DRUGS (4)
  1. COR MIO [Suspect]
     Indication: CARDIAC DISORDER
     Dosage: 200 MG, UNK
     Route: 048
  2. LEVOID [Interacting]
     Dosage: 112 UG, UNK
  3. TORLOS [Concomitant]
     Indication: CARDIAC DISORDER
     Dosage: 50 MG, UNK
  4. DIVELOL [Concomitant]
     Indication: CARDIAC DISORDER
     Dosage: 12.5 MG, UNK

REACTIONS (1)
  - Drug interaction [Unknown]
